FAERS Safety Report 25684142 (Version 1)
Quarter: 2025Q3

REPORT INFORMATION
  Report Type: Spontaneous
  Country: EU (occurrence: EU)
  Receive Date: 20250815
  Receipt Date: 20250815
  Transmission Date: 20251021
  Serious: Yes (Hospitalization, Other)
  Sender: BOEHRINGER INGELHEIM
  Company Number: None

PATIENT
  Age: 42 Month
  Sex: Female
  Weight: 15 kg

DRUGS (3)
  1. ALBUTEROL\IPRATROPIUM [Suspect]
     Active Substance: ALBUTEROL\IPRATROPIUM
     Indication: Product used for unknown indication
     Dosage: 2,5MG/0,25MG PER DOSIS, ELK HALF UUR.?2,5MG/0,25MG PER DOSE, EACH HALF AN HOUR.
     Dates: start: 20250807
  2. PREDNISONE [Concomitant]
     Active Substance: PREDNISONE
     Indication: Product used for unknown indication
  3. MAGNESIUMSULFAAT INJVLST 200MG/ML (0,8MMOL/ML) / [Concomitant]
     Indication: Product used for unknown indication

REACTIONS (3)
  - Lactic acidosis [Recovering/Resolving]
  - Hypokalaemia [Recovering/Resolving]
  - Hyperglycaemia [Recovering/Resolving]
